FAERS Safety Report 8428417 (Version 3)
Quarter: 2013Q1

REPORT INFORMATION
  Report Type: Spontaneous
  Country: JP (occurrence: JP)
  Receive Date: 20120227
  Receipt Date: 20130102
  Transmission Date: 20140127
  Serious: Yes (Life-Threatening, Hospitalization)
  Sender: FDA-Public Use
  Company Number: JP-JNJFOC-20120210249

PATIENT
  Age: 62 Year
  Sex: Male
  Weight: 72 kg

DRUGS (14)
  1. REMICADE [Suspect]
     Indication: CROHN^S DISEASE
     Route: 042
  2. REMICADE [Suspect]
     Indication: CROHN^S DISEASE
     Route: 042
     Dates: start: 20101211
  3. REMICADE [Suspect]
     Indication: CROHN^S DISEASE
     Route: 042
     Dates: start: 20111215
  4. REMICADE [Suspect]
     Indication: CROHN^S DISEASE
     Route: 042
     Dates: start: 20120208
  5. REMICADE [Suspect]
     Indication: CROHN^S DISEASE
     Route: 042
     Dates: start: 20120517
  6. REMICADE [Suspect]
     Indication: CROHN^S DISEASE
     Route: 042
     Dates: start: 20120530
  7. AMEZINIUM METILSULFATE [Concomitant]
     Indication: ORTHOSTATIC HYPOTENSION
     Route: 048
  8. MAINTATE [Concomitant]
     Indication: HYPERTENSION
     Route: 048
  9. OMEPRAL [Concomitant]
     Indication: GASTROOESOPHAGEAL REFLUX DISEASE
     Route: 048
  10. NELBON [Concomitant]
     Indication: INSOMNIA
     Route: 048
  11. PENTASA [Concomitant]
     Indication: CROHN^S DISEASE
     Dosage: DOSE FOR ONE TREATMENT 1000 MG
     Route: 048
  12. DOPS [Concomitant]
     Indication: ORTHOSTATIC HYPOTENSION
     Route: 048
  13. BROTIZOLAM [Concomitant]
     Indication: INSOMNIA
     Route: 048
  14. CALBLOCK [Concomitant]
     Indication: HYPERTENSION
     Route: 048

REACTIONS (1)
  - Adenocarcinoma gastric [Recovering/Resolving]
